FAERS Safety Report 13749020 (Version 1)
Quarter: 2017Q3

REPORT INFORMATION
  Report Type: Spontaneous
  Country: RU (occurrence: RU)
  Receive Date: 20170713
  Receipt Date: 20170713
  Transmission Date: 20171127
  Serious: Yes (Hospitalization)
  Sender: FDA-Public Use
  Company Number: RU-ASTRAZENECA-2017SE71588

PATIENT
  Age: 69 Year
  Sex: Female
  Weight: 104 kg

DRUGS (8)
  1. FORXIGA [Suspect]
     Active Substance: DAPAGLIFLOZIN
     Indication: TYPE 2 DIABETES MELLITUS
     Route: 048
     Dates: start: 201704
  2. LOZAP [Concomitant]
     Active Substance: LOSARTAN
  3. PANCREATIN [Concomitant]
     Active Substance: PANCRELIPASE
  4. ENAP [Concomitant]
     Active Substance: ENALAPRIL
  5. NO-SPA [Concomitant]
     Active Substance: DROTAVERINE HYDROCHLORIDE
  6. ACECARDOL [Concomitant]
     Active Substance: ASPIRIN
  7. FINLEPSIN [Concomitant]
     Active Substance: CARBAMAZEPINE
  8. NEUROMIDIN [Concomitant]

REACTIONS (1)
  - Facial paralysis [Unknown]
